FAERS Safety Report 9165546 (Version 2)
Quarter: 2013Q2

REPORT INFORMATION
  Report Type: Spontaneous
  Country: CO (occurrence: CO)
  Receive Date: 20130315
  Receipt Date: 20130410
  Transmission Date: 20140414
  Serious: Yes (Other)
  Sender: FDA-Public Use
  Company Number: CO-VERTEX PHARMACEUTICALS INC.-2013-003617

PATIENT
  Age: 23 Year
  Sex: Female
  Weight: 55.5 kg

DRUGS (3)
  1. INCIVO [Suspect]
     Indication: HEPATITIS C
     Dosage: 750 MG, TID
     Route: 048
     Dates: start: 20130309
  2. RIBAVIRIN [Concomitant]
     Indication: HEPATITIS C
     Dosage: DOSAGE FORM: TABLET
     Route: 048
     Dates: start: 20130309
  3. PEGINTERFERON ALFA 2A [Concomitant]
     Indication: HEPATITIS C
     Dosage: DOSAGE FORM: AMP SC.
     Route: 058
     Dates: start: 20130309

REACTIONS (8)
  - Pyrexia [Unknown]
  - Dyspnoea [Unknown]
  - Arthralgia [Unknown]
  - Dizziness [Unknown]
  - Tremor [Unknown]
  - Amenorrhoea [Unknown]
  - Vomiting [Unknown]
  - Nausea [Unknown]
